FAERS Safety Report 5139618-X (Version None)
Quarter: 2006Q4

REPORT INFORMATION
  Report Type: 
  Country: None (occurrence: None)
  Receive Date: 20061024
  Receipt Date: 20061019
  Transmission Date: 20070319
  Serious: Yes (Hospitalization)
  Sender: FDA-Public Use
  Company Number: THQ2006A00865

PATIENT
  Age: 73 Year
  Sex: Female

DRUGS (8)
  1. ACTOS [Suspect]
     Indication: DIABETES MELLITUS
     Dosage: SEE IMAGE, PER ORAL
     Route: 048
     Dates: start: 20051001, end: 20060301
  2. ACTOS [Suspect]
     Indication: DIABETES MELLITUS
     Dosage: SEE IMAGE, PER ORAL
     Route: 048
     Dates: start: 20060301
  3. SIMVASTATIN [Concomitant]
  4. ZANIDIP (LERCANIDIPINE HYDROCHLORIDE) [Concomitant]
  5. MICARDIS [Concomitant]
  6. COVERSYL PLUS (INDAPAMIDE, PERINDOPRIL ERBUMINE) [Concomitant]
  7. MOGADON (NITRAZEPAM) [Concomitant]
  8. DIAMICRON MR (GLICLAZIDE) [Concomitant]

REACTIONS (3)
  - CARDIAC FAILURE CONGESTIVE [None]
  - MYOCARDIAL ISCHAEMIA [None]
  - SINUS TACHYCARDIA [None]
